FAERS Safety Report 5701008-6 (Version None)
Quarter: 2008Q2

REPORT INFORMATION
  Report Type: 
  Country: None (occurrence: None)
  Receive Date: 20080410
  Receipt Date: 20080403
  Transmission Date: 20081010
  Serious: Yes (Other)
  Sender: FDA-Public Use
  Company Number: BR-ASTRAZENECA-2008UW06863

PATIENT
  Age: 62 Year
  Sex: Female
  Weight: 65 kg

DRUGS (3)
  1. ARIMIDEX [Suspect]
     Indication: BREAST CANCER
     Route: 048
     Dates: start: 20040101
  2. ATENOL [Concomitant]
     Indication: HYPERTENSION
     Route: 048
  3. RADIOTHERAPY [Concomitant]
     Dosage: 30 COURSES
     Dates: end: 20040101

REACTIONS (7)
  - ALOPECIA [None]
  - FLUID RETENTION [None]
  - GINGIVITIS [None]
  - HEADACHE [None]
  - HEPATIC STEATOSIS [None]
  - OSTEOARTHRITIS [None]
  - TOOTH DISORDER [None]
